FAERS Safety Report 6149110-1 (Version None)
Quarter: 2009Q2

REPORT INFORMATION
  Report Type: 
  Country: None (occurrence: None)
  Receive Date: 20090409
  Receipt Date: 20090326
  Transmission Date: 20091009
  Serious: Yes (Hospitalization, Other)
  Sender: FDA-Public Use
  Company Number: PHHY2009BR11831

PATIENT
  Sex: Female

DRUGS (1)
  1. PARLODEL [Suspect]
     Dosage: 5 MG, UNK

REACTIONS (1)
  - INCORRECT ROUTE OF DRUG ADMINISTRATION [None]
